FAERS Safety Report 14565923 (Version 1)
Quarter: 2018Q1

REPORT INFORMATION
  Report Type: Spontaneous
  Country: US (occurrence: US)
  Receive Date: 20180222
  Receipt Date: 20180222
  Transmission Date: 20180509
  Serious: Yes (Hospitalization)
  Sender: FDA-Public Use
  Company Number: None

PATIENT
  Age: 76 Year
  Sex: Male
  Weight: 84.64 kg

DRUGS (1)
  1. WARFARIN [Suspect]
     Active Substance: WARFARIN
     Indication: ATRIAL FIBRILLATION
     Route: 048
     Dates: start: 20170920, end: 20171204

REACTIONS (3)
  - Haemoglobin decreased [None]
  - Gastrointestinal haemorrhage [None]
  - Haematocrit decreased [None]

NARRATIVE: CASE EVENT DATE: 20171201
